FAERS Safety Report 25700200 (Version 4)
Quarter: 2025Q3

REPORT INFORMATION
  Report Type: Spontaneous
  Country: MX (occurrence: MX)
  Receive Date: 20250819
  Receipt Date: 20250903
  Transmission Date: 20251021
  Serious: Yes (Life-Threatening, Other)
  Sender: PFIZER
  Company Number: MX-PFIZER INC-PV202500099759

PATIENT
  Age: 31 Year
  Sex: Female

DRUGS (1)
  1. METHYLPREDNISOLONE SODIUM SUCCINATE [Suspect]
     Active Substance: METHYLPREDNISOLONE SODIUM SUCCINATE
     Indication: Graves^ disease
     Dosage: 500 MG, 3X/DAY FOR FIVE DAYS

REACTIONS (2)
  - Immunodeficiency [Recovered/Resolved]
  - Off label use [Unknown]
